FAERS Safety Report 19010113 (Version 2)
Quarter: 2021Q1

REPORT INFORMATION
  Report Type: Spontaneous
  Country: US (occurrence: US)
  Receive Date: 20210315
  Receipt Date: 20210319
  Transmission Date: 20210420
  Serious: Yes (Other)
  Sender: FDA-Public Use
  Company Number: US-ROCHE-2751608

PATIENT
  Sex: Female

DRUGS (3)
  1. TUKYSA [Suspect]
     Active Substance: TUCATINIB
     Indication: BREAST CANCER FEMALE
     Route: 065
  2. LOSARTAN. [Concomitant]
     Active Substance: LOSARTAN
  3. CAPECITABINE. [Suspect]
     Active Substance: CAPECITABINE
     Indication: PRODUCT USED FOR UNKNOWN INDICATION
     Route: 065

REACTIONS (20)
  - Epistaxis [Unknown]
  - Fatigue [Unknown]
  - Nausea [Unknown]
  - Peripheral coldness [Unknown]
  - Root canal infection [Unknown]
  - Lip blister [Unknown]
  - Neuropathy peripheral [Recovered/Resolved]
  - Erythema [Unknown]
  - Fall [Unknown]
  - Diarrhoea [Not Recovered/Not Resolved]
  - Heart rate increased [Unknown]
  - Burning sensation [Unknown]
  - Nasal dryness [Unknown]
  - Ligament sprain [Unknown]
  - Decreased appetite [Unknown]
  - Pain in extremity [Unknown]
  - Joint neoplasm [Unknown]
  - Dry skin [Unknown]
  - Blood pressure decreased [Unknown]
  - Palmar erythema [Unknown]
